FAERS Safety Report 8521767-7 (Version None)
Quarter: 2012Q3

REPORT INFORMATION
  Report Type: 
  Country: None (occurrence: None)
  Receive Date: 20120719
  Receipt Date: 20120711
  Transmission Date: 20120928
  Serious: Yes (Other)
  Sender: FDA-Public Use
  Company Number: CA-JNJFOC-20120705760

PATIENT
  Sex: Female
  Weight: 57 kg

DRUGS (3)
  1. HYDROCORTISONE [Concomitant]
     Indication: PREMEDICATION
     Route: 042
  2. REMICADE [Suspect]
     Route: 042
     Dates: start: 20120530
  3. REMICADE [Suspect]
     Indication: CROHN'S DISEASE
     Route: 042
     Dates: start: 20070509

REACTIONS (4)
  - FALL [None]
  - INFUSION RELATED REACTION [None]
  - EYE PAIN [None]
  - PELVIC PAIN [None]
